FAERS Safety Report 23039919 (Version 1)
Quarter: 2023Q4

REPORT INFORMATION
  Report Type: Spontaneous
  Country: FR (occurrence: FR)
  Receive Date: 20231006
  Receipt Date: 20231006
  Transmission Date: 20240110
  Serious: Yes (Other)
  Sender: FDA-Public Use
  Company Number: None

PATIENT

DRUGS (1)
  1. MALARONE [Suspect]
     Active Substance: ATOVAQUONE\PROGUANIL HYDROCHLORIDE
     Indication: Malaria prophylaxis
     Dosage: 1 DF, QD, 1 TABLET PER DAY (250 MG/100 MG)
     Route: 048
     Dates: start: 20230702, end: 20230729

REACTIONS (10)
  - Amnesia [Recovering/Resolving]
  - Paranoia [Recovering/Resolving]
  - Dysphagia [Recovering/Resolving]
  - Anxiety [Recovering/Resolving]
  - Nightmare [Recovering/Resolving]
  - Dyspnoea [Recovering/Resolving]
  - Tachycardia [Recovering/Resolving]
  - Palpitations [Recovering/Resolving]
  - Headache [Recovering/Resolving]
  - Pyrexia [Recovering/Resolving]

NARRATIVE: CASE EVENT DATE: 20230801
